FAERS Safety Report 10396448 (Version 3)
Quarter: 2014Q3

REPORT INFORMATION
  Report Type: Report from Study
  Country: CA (occurrence: CA)
  Receive Date: 20140820
  Receipt Date: 20140829
  Transmission Date: 20150326
  Serious: No
  Sender: FDA-Public Use
  Company Number: PHHY2014CA073627

PATIENT
  Age: 34 Year
  Sex: Female
  Weight: 77.98 kg

DRUGS (2)
  1. EXTAVIA [Suspect]
     Active Substance: INTERFERON BETA-1B
     Indication: MULTIPLE SCLEROSIS RELAPSE
     Dosage: 8 MIU, QOD
     Route: 058
     Dates: start: 20140608
  2. EXTAVIA [Suspect]
     Active Substance: INTERFERON BETA-1B
     Dosage: 8 MIU, QOD
     Route: 058
     Dates: start: 20140627

REACTIONS (23)
  - Urinary tract infection [Unknown]
  - Burning sensation [Unknown]
  - Dark circles under eyes [Unknown]
  - Hangover [Unknown]
  - Fatigue [Unknown]
  - Malaise [Recovering/Resolving]
  - Fungal infection [Unknown]
  - Inappropriate schedule of drug administration [Unknown]
  - Daydreaming [Unknown]
  - Mouth swelling [Unknown]
  - Injection site discolouration [Unknown]
  - Injection site erythema [Unknown]
  - Nausea [Recovered/Resolved]
  - Somnolence [Unknown]
  - Heart rate increased [Unknown]
  - Feeling abnormal [Unknown]
  - Disturbance in attention [Recovering/Resolving]
  - Eye swelling [Unknown]
  - Eye irritation [Unknown]
  - Headache [Unknown]
  - Dizziness [Unknown]
  - Bone pain [Unknown]
  - Pain in extremity [Unknown]

NARRATIVE: CASE EVENT DATE: 20140608
